FAERS Safety Report 5925187-0 (Version None)
Quarter: 2008Q4

REPORT INFORMATION
  Report Type: 
  Country: None (occurrence: None)
  Receive Date: 20081020
  Receipt Date: 20081020
  Transmission Date: 20090506
  Serious: No
  Sender: FDA-Public Use
  Company Number: None

PATIENT
  Age: 50 Year
  Sex: Female
  Weight: 63.5036 kg

DRUGS (1)
  1. ACTONEL [Suspect]
     Dosage: 150MG  1 PER MONTH
     Dates: start: 20081017, end: 20081017

REACTIONS (1)
  - DISABILITY [None]
